FAERS Safety Report 4869752-0 (Version None)
Quarter: 2005Q4

REPORT INFORMATION
  Report Type: 
  Country: None (occurrence: None)
  Receive Date: 20051223
  Receipt Date: 20051220
  Transmission Date: 20060501
  Serious: Yes (Hospitalization)
  Sender: FDA-Public Use
  Company Number: 220532

PATIENT
  Age: 44 Year
  Sex: Male

DRUGS (6)
  1. RAPTIVA [Suspect]
     Indication: PSORIASIS
     Dosage: 1.4 ML, 1/WEEK
     Dates: start: 20050401, end: 20051011
  2. VOLTAREN [Concomitant]
  3. WARFARIN SODIUM [Concomitant]
  4. NEURONTIN [Concomitant]
  5. METFORMIN HCL [Concomitant]
  6. DIFLUCAN (FLUCONAZOLE) [Concomitant]

REACTIONS (4)
  - CONDITION AGGRAVATED [None]
  - DYSPNOEA [None]
  - PSORIASIS [None]
  - RASH [None]
